FAERS Safety Report 8478117-4 (Version None)
Quarter: 2012Q2

REPORT INFORMATION
  Report Type: 
  Country: None (occurrence: None)
  Receive Date: 20120629
  Receipt Date: 20120625
  Transmission Date: 20120825
  Serious: Yes (Hospitalization, Other)
  Sender: FDA-Public Use
  Company Number: US-PFIZER INC-2012098328

PATIENT
  Age: 61 Year
  Sex: Male

DRUGS (6)
  1. REVATIO [Suspect]
     Indication: PULMONARY ARTERIAL HYPERTENSION
     Dosage: UNK
  2. AMBRISENTAN [Suspect]
     Dosage: UNK
  3. REVATIO [Suspect]
     Dosage: 80 MG, 3X/DAY
     Route: 048
     Dates: start: 20120405
  4. PLAVIX [Concomitant]
     Dosage: UNK
  5. REVATIO [Suspect]
     Indication: PULMONARY HYPERTENSION
     Dosage: 60 MG, UNK
  6. TYVASO [Suspect]
     Indication: PULMONARY ARTERIAL HYPERTENSION
     Dosage: 54 UG, 4X/DAY
     Dates: start: 20100402

REACTIONS (2)
  - DYSPNOEA [None]
  - DYSPNOEA EXERTIONAL [None]
